FAERS Safety Report 5028907-5 (Version None)
Quarter: 2006Q2

REPORT INFORMATION
  Report Type: 
  Country: None (occurrence: None)
  Receive Date: 20060619
  Receipt Date: 20060614
  Transmission Date: 20061013
  Serious: Yes (Hospitalization)
  Sender: FDA-Public Use
  Company Number: BPC-SR-06-054

PATIENT

DRUGS (1)
  1. WELLBUTRIN SR [Suspect]

REACTIONS (4)
  - DRUG EXPOSURE DURING PREGNANCY [None]
  - DRUG EXPOSURE VIA BREAST MILK [None]
  - SKIN EXFOLIATION [None]
  - STAPHYLOCOCCAL SCALDED SKIN SYNDROME [None]
